FAERS Safety Report 20366664 (Version 1)
Quarter: 2022Q1

REPORT INFORMATION
  Report Type: Other
  Country: US (occurrence: US)
  Receive Date: 20220123
  Receipt Date: 20220123
  Transmission Date: 20220423
  Serious: No
  Sender: FDA-Public Use
  Company Number: US-ACORDA-ACO_170310_2021

PATIENT
  Sex: Female
  Weight: 57.143 kg

DRUGS (1)
  1. AMPYRA [Suspect]
     Active Substance: DALFAMPRIDINE
     Indication: Multiple sclerosis
     Dosage: 10 MILLIGRAM, Q 12 HRS
     Route: 048

REACTIONS (6)
  - Renal impairment [Unknown]
  - Influenza like illness [Unknown]
  - Weight gain poor [Unknown]
  - Tremor [Unknown]
  - Decreased appetite [Unknown]
  - Asthenia [Unknown]
